FAERS Safety Report 7136027-9 (Version None)
Quarter: 2010Q4

REPORT INFORMATION
  Report Type: 
  Country: None (occurrence: None)
  Receive Date: 20101204
  Receipt Date: 20101119
  Transmission Date: 20110411
  Serious: Yes (Hospitalization, Other)
  Sender: FDA-Public Use
  Company Number: US-BAYER-201047886GPV

PATIENT

DRUGS (3)
  1. VENTAVIS [Suspect]
     Dosage: FIRST SHIPMENT: 14-AUG-2009 / LAST SHIPMENT: 13-AUG-2010; I-NEB CHAMBER GOLD; I-NEB AAD SYSTEM
     Route: 055
  2. TRACLEER [Suspect]
     Dosage: FIRST AND LAST SHIPMENT DATES: 18-OCT-2010
     Route: 065
     Dates: start: 20101026
  3. CALCIUM CHANNEL BLOCKERS [Concomitant]

REACTIONS (4)
  - CARDIAC DISORDER [None]
  - CHRONIC OBSTRUCTIVE PULMONARY DISEASE [None]
  - PNEUMONIA [None]
  - PNEUMONIA VIRAL [None]
